FAERS Safety Report 5052529-3 (Version None)
Quarter: 2006Q3

REPORT INFORMATION
  Report Type: 
  Country: None (occurrence: None)
  Receive Date: 20060717
  Receipt Date: 20060308
  Transmission Date: 20061208
  Serious: Yes (Death, Hospitalization)
  Sender: FDA-Public Use
  Company Number: PHHO2006DE04144

PATIENT
  Age: 26 Year
  Sex: Female

DRUGS (4)
  1. SANDIMMUNE [Concomitant]
     Indication: RENAL TRANSPLANT
     Dosage: NOT REPORTED
  2. PREDNISOLONE [Concomitant]
     Indication: RENAL TRANSPLANT
     Dosage: NOT REPORTED
  3. MYFORTIC [Suspect]
     Indication: RENAL TRANSPLANT
  4. CERTICAN [Suspect]
     Indication: RENAL TRANSPLANT
     Dosage: NO TREATMENT

REACTIONS (10)
  - COMPLICATIONS OF TRANSPLANTED KIDNEY [None]
  - COMPLICATIONS OF TRANSPLANTED LIVER [None]
  - HAEMATOMA [None]
  - HEPATIC FAILURE [None]
  - HYPOVOLAEMIC SHOCK [None]
  - LIVER TRANSPLANT [None]
  - MULTI-ORGAN FAILURE [None]
  - POST PROCEDURAL HAEMORRHAGE [None]
  - SEPSIS [None]
  - SYSTEMIC INFLAMMATORY RESPONSE SYNDROME [None]
